FAERS Safety Report 25588462 (Version 2)
Quarter: 2025Q4

REPORT INFORMATION
  Report Type: Spontaneous
  Country: US (occurrence: US)
  Receive Date: 20250722
  Receipt Date: 20251008
  Transmission Date: 20260117
  Serious: No
  Sender: TOLMAR
  Company Number: US-Tolmar-TLM-2025-04774

PATIENT

DRUGS (3)
  1. ELIGARD [Suspect]
     Active Substance: LEUPROLIDE ACETATE
     Indication: Prostate cancer
     Dosage: SEP-2026; AUG-2026; AUG-2026
     Route: 065
  2. ELIGARD [Suspect]
     Active Substance: LEUPROLIDE ACETATE
     Dosage: REPLACEMENT DOSE
     Route: 065
  3. DEVICE [Suspect]
     Active Substance: DEVICE
     Indication: Prostate cancer
     Dosage: SEP-2026; AUG-2026; AUG-2026

REACTIONS (5)
  - Intercepted product preparation error [Unknown]
  - Product preparation error [Unknown]
  - Product quality issue [Unknown]
  - Device leakage [Unknown]
  - Product physical consistency issue [Unknown]
